FAERS Safety Report 16456407 (Version 1)
Quarter: 2019Q2

REPORT INFORMATION
  Report Type: Report from Study
  Country: BR (occurrence: BR)
  Receive Date: 20190620
  Receipt Date: 20190620
  Transmission Date: 20190711
  Serious: Yes (Hospitalization)
  Sender: FDA-Public Use
  Company Number: BR-BIOGEN-2019BI00751690

PATIENT
  Age: 18 Year
  Sex: Female

DRUGS (1)
  1. AVONEX [Suspect]
     Active Substance: INTERFERON BETA-1A
     Indication: MULTIPLE SCLEROSIS
     Route: 030
     Dates: start: 201811

REACTIONS (7)
  - Purpura [Not Recovered/Not Resolved]
  - Malaise [Unknown]
  - Coordination abnormal [Unknown]
  - Pain [Unknown]
  - Platelet count decreased [Recovered/Resolved]
  - Dizziness [Not Recovered/Not Resolved]
  - Chills [Unknown]

NARRATIVE: CASE EVENT DATE: 201904
